FAERS Safety Report 7319861-1 (Version None)
Quarter: 2011Q1

REPORT INFORMATION
  Report Type: 
  Country: None (occurrence: None)
  Receive Date: 20110228
  Receipt Date: 20101116
  Transmission Date: 20110831
  Serious: No
  Sender: FDA-Public Use
  Company Number: A0889591A

PATIENT
  Age: 24 Year
  Sex: Female

DRUGS (5)
  1. VALIUM [Concomitant]
  2. CLONIDINE [Concomitant]
  3. LAMICTAL [Suspect]
     Dosage: 50MG PER DAY
     Route: 048
     Dates: start: 20101018
  4. GEODON [Concomitant]
  5. CYMBALTA [Concomitant]

REACTIONS (3)
  - MYDRIASIS [None]
  - ACCOMMODATION DISORDER [None]
  - VISION BLURRED [None]
